FAERS Safety Report 6014791-X (Version None)
Quarter: 2008Q4

REPORT INFORMATION
  Report Type: 
  Country: None (occurrence: None)
  Receive Date: 20081219
  Receipt Date: 20081212
  Transmission Date: 20090506
  Serious: Yes (Other)
  Sender: FDA-Public Use
  Company Number: PHHY2008DE32091

PATIENT
  Sex: Female

DRUGS (3)
  1. RASILEZ [Suspect]
     Indication: HYPERTENSION
     Dosage: 300 MG/DAY
     Dates: start: 20080829
  2. CARMEN [Concomitant]
     Indication: HYPERTENSION
     Dosage: UNK
     Dates: start: 20080829
  3. TELMISARTAN [Concomitant]
     Indication: HYPERTENSION
     Dosage: UNK
     Dates: start: 20080829

REACTIONS (1)
  - ALVEOLITIS [None]
